FAERS Safety Report 10769738 (Version 1)
Quarter: 2015Q1

REPORT INFORMATION
  Report Type: Report from Study
  Country: US (occurrence: US)
  Receive Date: 20150206
  Receipt Date: 20150206
  Transmission Date: 20150721
  Serious: Yes (Other)
  Sender: FDA-Public Use
  Company Number: US-ASTELLAS-2015US003313

PATIENT
  Sex: Female

DRUGS (5)
  1. ALTABAX [Concomitant]
     Active Substance: RETAPAMULIN
     Indication: DERMATITIS ATOPIC
     Dosage: UNK UNK, 3 TUBES
     Route: 061
  2. CUREL ADVANCED CERAMIDE THERAPY [Concomitant]
     Active Substance: PETROLATUM
     Indication: DERMATITIS ATOPIC
     Dosage: UNK UNK, UNKNOWN FREQ.
     Route: 061
  3. TACROLIMUS. [Suspect]
     Active Substance: TACROLIMUS
     Indication: DERMATITIS ATOPIC
     Dosage: UNK UNK, 1-2 TUBES
     Route: 061
     Dates: start: 20010901
  4. FLUOCINONIDE. [Concomitant]
     Active Substance: FLUOCINONIDE
     Indication: DERMATITIS ATOPIC
     Dosage: UNK UNK, 6 TUBES
     Route: 061
  5. HIBICLENS [Concomitant]
     Active Substance: CHLORHEXIDINE GLUCONATE
     Indication: DERMATITIS ATOPIC
     Dosage: UNK UNK, UNKNOWN FREQ.
     Route: 061

REACTIONS (2)
  - Staphylococcal infection [Unknown]
  - Product use issue [Unknown]
